FAERS Safety Report 24789821 (Version 1)
Quarter: 2024Q4

REPORT INFORMATION
  Report Type: Spontaneous
  Country: US (occurrence: None)
  Receive Date: 20241229
  Receipt Date: 20241229
  Transmission Date: 20250115
  Serious: Yes (Other)
  Sender: Public
  Company Number: None

PATIENT
  Age: 79 Year
  Sex: Male
  Weight: 83.25 kg

DRUGS (1)
  1. XOLAIR [Suspect]
     Active Substance: OMALIZUMAB
     Indication: Urticaria
     Dates: start: 20240731, end: 20241117

REACTIONS (3)
  - Eczema [None]
  - Dermatitis [None]
  - Pruritus [None]

NARRATIVE: CASE EVENT DATE: 20240731
